FAERS Safety Report 5903542-2 (Version None)
Quarter: 2008Q3

REPORT INFORMATION
  Report Type: 
  Country: None (occurrence: None)
  Receive Date: 20080919
  Receipt Date: 20080821
  Transmission Date: 20090109
  Serious: No
  Sender: FDA-Public Use
  Company Number: US-WYE-H05670808

PATIENT
  Age: 69 Year
  Sex: Female
  Weight: 94.43 kg

DRUGS (4)
  1. PRISTIQ [Suspect]
     Indication: FIBROMYALGIA
     Dosage: 50 MG 1X PER 1 DAY, ORAL
     Route: 048
     Dates: start: 20080601
  2. SYNTHROID [Concomitant]
  3. FOLIC ACID [Concomitant]
  4. HYDROCODONE (HYDROCODONE) [Concomitant]

REACTIONS (2)
  - NAUSEA [None]
  - STOMACH DISCOMFORT [None]
